FAERS Safety Report 4614889-4 (Version None)
Quarter: 2005Q1

REPORT INFORMATION
  Report Type: 
  Country: None (occurrence: None)
  Receive Date: 20050318
  Receipt Date: 20050318
  Transmission Date: 20050727
  Serious: Yes (Hospitalization)
  Sender: FDA-Public Use
  Company Number: None

PATIENT
  Age: 44 Year
  Sex: Female

DRUGS (3)
  1. CYMBALTA [Suspect]
     Indication: SCHIZOAFFECTIVE DISORDER
     Dosage: 60 MG PO DAILY
     Dates: start: 20041210, end: 20050202
  2. ABILIFY [Suspect]
     Indication: SCHIZOAFFECTIVE DISORDER
     Dosage: 20 MG PO HS
     Route: 048
     Dates: start: 20041217, end: 20050202
  3. DEPAKOTE [Concomitant]

REACTIONS (5)
  - GRANDIOSITY [None]
  - HYPOMANIA [None]
  - INAPPROPRIATE AFFECT [None]
  - PRESSURE OF SPEECH [None]
  - SPEECH DISORDER [None]
